FAERS Safety Report 4606242-4 (Version None)
Quarter: 2005Q1

REPORT INFORMATION
  Report Type: 
  Country: None (occurrence: None)
  Receive Date: 20050116
  Receipt Date: 20040521
  Transmission Date: 20050727
  Serious: Yes (Hospitalization)
  Sender: FDA-Public Use
  Company Number: HQWYE081124MAY04

PATIENT
  Age: 51 Year
  Sex: Female
  Weight: 63.11 kg

DRUGS (3)
  1. EFFEXOR [Suspect]
     Indication: DEPRESSION
     Dosage: 3 TABLETS DAILY, ORAL
     Route: 048
     Dates: start: 20040123, end: 20040301
  2. ESTRATEST [Concomitant]
  3. UNSPECIFIED ANTIBIOTIC (UNSPECIFIED ANTIBIOTIC) [Concomitant]

REACTIONS (3)
  - CARDIAC DISCOMFORT [None]
  - FURUNCLE [None]
  - MYOCARDIAL INFARCTION [None]
